FAERS Safety Report 5911938-8 (Version None)
Quarter: 2008Q4

REPORT INFORMATION
  Report Type: 
  Country: None (occurrence: None)
  Receive Date: 20081008
  Receipt Date: 20080929
  Transmission Date: 20090506
  Serious: Yes (Other)
  Sender: FDA-Public Use
  Company Number: PHHY2008FR16969

PATIENT
  Sex: Female
  Weight: 70 kg

DRUGS (9)
  1. ACLASTA [Suspect]
     Indication: OSTEOPOROSIS
     Dosage: 5 MG
     Route: 042
     Dates: start: 20080725
  2. COVERSYL [Concomitant]
  3. ALDACTONE [Concomitant]
  4. PRAXILENE [Concomitant]
  5. PLAVIX [Concomitant]
     Indication: ARTERITIS
  6. ALDACTAZINE [Concomitant]
  7. TAHOR [Concomitant]
  8. HYPERIUM [Concomitant]
  9. DI-ANTALVIC [Concomitant]

REACTIONS (5)
  - ATRIAL FIBRILLATION [None]
  - DYSPNOEA [None]
  - MALAISE [None]
  - SINUS TACHYCARDIA [None]
  - TACHYARRHYTHMIA [None]
